FAERS Safety Report 13227214 (Version 1)
Quarter: 2017Q1

REPORT INFORMATION
  Report Type: Spontaneous
  Country: HR (occurrence: HR)
  Receive Date: 20170213
  Receipt Date: 20170213
  Transmission Date: 20170428
  Serious: Yes (Other)
  Sender: FDA-Public Use
  Company Number: HR-TEVA-737470ACC

PATIENT
  Age: 14 Year
  Sex: Male

DRUGS (4)
  1. RISSET [Suspect]
     Active Substance: RISPERIDONE
     Route: 048
     Dates: start: 20161116
  2. PRAZINE [Suspect]
     Active Substance: PROMAZINE HYDROCHLORIDE
     Route: 048
     Dates: start: 20161116
  3. IBUPROFEN PLIVA [Suspect]
     Active Substance: IBUPROFEN
     Route: 048
     Dates: start: 20161116
  4. FEVARIN [Suspect]
     Active Substance: FLUVOXAMINE MALEATE
     Route: 048
     Dates: start: 20161116

REACTIONS (3)
  - No adverse event [Unknown]
  - Suicide attempt [Unknown]
  - Intentional overdose [Unknown]

NARRATIVE: CASE EVENT DATE: 20161116
